FAERS Safety Report 4912981-8 (Version None)
Quarter: 2006Q1

REPORT INFORMATION
  Report Type: 
  Country: None (occurrence: None)
  Receive Date: 20060210
  Receipt Date: 20060130
  Transmission Date: 20060701
  Serious: Yes (Hospitalization)
  Sender: FDA-Public Use
  Company Number: HQWYE581831JAN06

PATIENT
  Age: 63 Year
  Sex: Male

DRUGS (16)
  1. RAPAMUNE [Suspect]
     Indication: PROPHYLAXIS AGAINST TRANSPLANT REJECTION
     Dosage: 4 MG 1X PER 1 DAY, ORAL
     Route: 048
     Dates: start: 20041018
  2. MEDROL [Suspect]
     Indication: PROPHYLAXIS AGAINST TRANSPLANT REJECTION
     Dosage: ORAL
     Route: 048
     Dates: start: 20040808
  3. MYCOPHENOLATE MOFETIL (MYCOPHENOLATE, MOFETIL) [Suspect]
     Indication: PROPHYLAXIS AGAINST TRANSPLANT REJECTION
     Dosage: 1000 MG 2X PER 1 DAY, ORAL
     Route: 048
     Dates: start: 20040804
  4. ACCOLATE [Concomitant]
  5. NIFEDIPINE [Concomitant]
  6. HYTRIN [Concomitant]
  7. LIPITOR [Concomitant]
  8. ASPIRIN [Concomitant]
  9. LOPRESSOR [Concomitant]
  10. PROTONIX [Concomitant]
  11. ALLOPURINOL [Concomitant]
  12. PLETAL [Concomitant]
  13. FLEXERIL [Concomitant]
  14. LASIX [Concomitant]
  15. FERROUS SULFATE TAB [Concomitant]
  16. COLCHICUM JTL LIQ [Concomitant]

REACTIONS (20)
  - BACTERIURIA [None]
  - CARDIAC FAILURE CONGESTIVE [None]
  - DECREASED APPETITE [None]
  - DEHYDRATION [None]
  - DIARRHOEA [None]
  - DIZZINESS [None]
  - DRUG LEVEL ABOVE THERAPEUTIC [None]
  - HAEMATURIA [None]
  - HAEMOGLOBIN DECREASED [None]
  - HYDRONEPHROSIS [None]
  - IMMUNOSUPPRESSANT DRUG LEVEL INCREASED [None]
  - KIDNEY TRANSPLANT REJECTION [None]
  - LUNG CONSOLIDATION [None]
  - MALAISE [None]
  - NEPHRITIS [None]
  - PNEUMONIA [None]
  - PROTEINURIA [None]
  - RENAL FAILURE [None]
  - THERAPEUTIC AGENT TOXICITY [None]
  - URINE LEUKOCYTE ESTERASE POSITIVE [None]
